FAERS Safety Report 5033384-4 (Version None)
Quarter: 2006Q2

REPORT INFORMATION
  Report Type: 
  Country: None (occurrence: None)
  Receive Date: 20060623
  Receipt Date: 20060501
  Transmission Date: 20061013
  Serious: Yes (Hospitalization)
  Sender: FDA-Public Use
  Company Number: PHEH2006US05679

PATIENT
  Age: 54 Year
  Sex: Female

DRUGS (2)
  1. ZELNORM [Suspect]
     Indication: IRRITABLE BOWEL SYNDROME
     Dosage: UNK
     Route: 048
     Dates: end: 20040501
  2. ZELNORM [Suspect]
     Dosage: 6 MG, BID
     Route: 048
     Dates: start: 20040811

REACTIONS (12)
  - ABDOMINAL PAIN [None]
  - COLITIS [None]
  - COLITIS ISCHAEMIC [None]
  - COLONOSCOPY ABNORMAL [None]
  - DIARRHOEA [None]
  - ECCHYMOSIS [None]
  - ERYTHEMA [None]
  - HAEMATOCHEZIA [None]
  - INTESTINAL ULCER [None]
  - LARGE INTESTINAL ULCER [None]
  - MUCOSAL INFLAMMATION [None]
  - RECTAL HAEMORRHAGE [None]
